FAERS Safety Report 19364593 (Version 1)
Quarter: 2021Q2

REPORT INFORMATION
  Report Type: Spontaneous
  Country: FR (occurrence: FR)
  Receive Date: 20210603
  Receipt Date: 20210603
  Transmission Date: 20210717
  Serious: Yes (Life-Threatening)
  Sender: FDA-Public Use
  Company Number: FR-TEVA-2021-FR-1917242

PATIENT
  Age: 54 Year
  Sex: Female
  Weight: 65 kg

DRUGS (3)
  1. CHLORHYDRATE DE DULOXETINE [Suspect]
     Active Substance: DULOXETINE HYDROCHLORIDE
     Indication: PRODUCT USED FOR UNKNOWN INDICATION
     Dosage: THERAPY START DATE:THERAPY END DATE:ASKU
     Route: 048
  2. MODIODAL [Interacting]
     Active Substance: MODAFINIL
     Indication: HYPERSOMNIA
     Dosage: 200MILLIGRAM
     Route: 048
     Dates: start: 20191216, end: 20200727
  3. TIGREAT 2,5 MG, COMPRIME PELLICULE [Interacting]
     Active Substance: FROVATRIPTAN SUCCINATE
     Indication: PRODUCT USED FOR UNKNOWN INDICATION
     Dosage: THERAPY END DATE :ASKU
     Route: 048
     Dates: start: 20200725

REACTIONS (2)
  - Stress cardiomyopathy [Recovered/Resolved]
  - Drug interaction [Unknown]

NARRATIVE: CASE EVENT DATE: 20200727
